FAERS Safety Report 5105005-3 (Version None)
Quarter: 2006Q3

REPORT INFORMATION
  Report Type: 
  Country: None (occurrence: None)
  Receive Date: 20060911
  Receipt Date: 20060829
  Transmission Date: 20061208
  Serious: Yes (Disabling, Other)
  Sender: FDA-Public Use
  Company Number: 2004059265

PATIENT
  Age: 85 Year
  Sex: Female
  Weight: 61.6892 kg

DRUGS (6)
  1. NEURONTIN [Suspect]
     Indication: NEUROPATHY PERIPHERAL
     Dosage: 300 MG (300 MG, 1 IN 1 D), ORAL
     Route: 048
     Dates: start: 20040818
  2. LYRICA [Suspect]
     Indication: NEUROPATHY
     Dosage: 75 MG (75 MG, 1 IN 1 D)
     Dates: start: 20060101
  3. CELEBREX [Concomitant]
  4. FOSAMAX [Concomitant]
  5. LOPRESSOR [Concomitant]
  6. DYAZIDE [Concomitant]

REACTIONS (11)
  - BURNING SENSATION [None]
  - CONSTIPATION [None]
  - DRUG INEFFECTIVE [None]
  - DRY MOUTH [None]
  - GAIT DISTURBANCE [None]
  - HYPOAESTHESIA [None]
  - NEUROPATHY [None]
  - SENSATION OF HEAVINESS [None]
  - VARICOSE VEIN [None]
  - VISION BLURRED [None]
  - WEIGHT DECREASED [None]
